FAERS Safety Report 20676412 (Version 18)
Quarter: 2022Q4

REPORT INFORMATION
  Report Type: Report from Study
  Country: JP (occurrence: None)
  Receive Date: 20220405
  Receipt Date: 20221010
  Transmission Date: 20230113
  Serious: Yes (Hospitalization)
  Sender: FDA-Public Use
  Company Number: JP-Eisai Medical Research-EC-2022-112229

PATIENT
  Age: 49 Year
  Sex: Male
  Weight: 65.6 kg

DRUGS (14)
  1. LENVATINIB [Suspect]
     Active Substance: LENVATINIB
     Indication: Adenocarcinoma gastric
     Route: 048
     Dates: start: 20211118, end: 20220209
  2. LENVATINIB [Suspect]
     Active Substance: LENVATINIB
     Indication: Oesophageal adenocarcinoma
     Route: 048
     Dates: start: 20220210, end: 20220215
  3. LENVATINIB [Suspect]
     Active Substance: LENVATINIB
     Dosage: STARTING DOSE 20 MG, FLUCTUATED DOSAGE
     Route: 048
     Dates: start: 20220310
  4. PEMBROLIZUMAB [Suspect]
     Active Substance: PEMBROLIZUMAB
     Indication: Adenocarcinoma gastric
     Route: 041
     Dates: start: 20211118, end: 20211228
  5. PEMBROLIZUMAB [Suspect]
     Active Substance: PEMBROLIZUMAB
     Indication: Oesophageal adenocarcinoma
     Route: 041
     Dates: start: 20220210, end: 20220210
  6. PEMBROLIZUMAB [Suspect]
     Active Substance: PEMBROLIZUMAB
     Route: 041
     Dates: start: 20220324, end: 20220324
  7. OXALIPLATIN [Suspect]
     Active Substance: OXALIPLATIN
     Indication: Adenocarcinoma gastric
     Route: 041
     Dates: start: 20211118, end: 20211228
  8. OXALIPLATIN [Suspect]
     Active Substance: OXALIPLATIN
     Indication: Oesophageal adenocarcinoma
     Dosage: UNKNOWN DOSE
     Route: 041
     Dates: start: 20220120, end: 20220120
  9. CAPECITABINE [Suspect]
     Active Substance: CAPECITABINE
     Indication: Adenocarcinoma gastric
     Dosage: FOR 14 DAYS EVERY 3 WEEKS
     Route: 048
     Dates: start: 20211118, end: 20220203
  10. CAPECITABINE [Suspect]
     Active Substance: CAPECITABINE
     Indication: Oesophageal adenocarcinoma
  11. LANSOPRAZOLE [Concomitant]
     Active Substance: LANSOPRAZOLE
     Dates: start: 20191031
  12. UREA [Concomitant]
     Active Substance: UREA
     Dates: start: 20211118, end: 20220309
  13. DIFLUCORTOLONE VALERATE [Concomitant]
     Active Substance: DIFLUCORTOLONE VALERATE
     Dates: start: 20211228, end: 20220309
  14. LEVOTHYROXINE SODIUM [Concomitant]
     Active Substance: LEVOTHYROXINE SODIUM
     Dates: start: 20220210, end: 20220214

REACTIONS (1)
  - Pulmonary toxicity [Recovered/Resolved]

NARRATIVE: CASE EVENT DATE: 20220215
